FAERS Safety Report 11707078 (Version 1)
Quarter: 2015Q4

REPORT INFORMATION
  Report Type: Spontaneous
  Country: US (occurrence: US)
  Receive Date: 20151106
  Receipt Date: 20151106
  Transmission Date: 20160304
  Serious: Yes (Other)
  Sender: FDA-Public Use
  Company Number: US-SA-2015SA171056

PATIENT
  Age: 78 Year
  Sex: Male

DRUGS (2)
  1. ENOXAPARIN SODIUM. [Suspect]
     Active Substance: ENOXAPARIN SODIUM
     Indication: THROMBOSIS
     Route: 065
  2. ENOXAPARIN SODIUM. [Suspect]
     Active Substance: ENOXAPARIN SODIUM
     Indication: THROMBOSIS
     Route: 065

REACTIONS (3)
  - Cerebrovascular accident [Unknown]
  - Lung lobectomy [Unknown]
  - Weight decreased [Unknown]

NARRATIVE: CASE EVENT DATE: 20150907
